FAERS Safety Report 11957353 (Version 1)
Quarter: 2016Q1

REPORT INFORMATION
  Report Type: Report from Study
  Country: US (occurrence: US)
  Receive Date: 20160126
  Receipt Date: 20160126
  Transmission Date: 20160526
  Serious: No
  Sender: FDA-Public Use
  Company Number: US-ABBVIE-15K-163-1342361-00

PATIENT
  Age: 51 Year
  Sex: Female

DRUGS (1)
  1. HUMIRA [Suspect]
     Active Substance: ADALIMUMAB
     Indication: RHEUMATOID ARTHRITIS
     Route: 065
     Dates: start: 20150108, end: 20150108

REACTIONS (9)
  - Respiratory tract congestion [Unknown]
  - Sinusitis [Not Recovered/Not Resolved]
  - Rhinorrhoea [Unknown]
  - Oral herpes [Not Recovered/Not Resolved]
  - Eye irritation [Not Recovered/Not Resolved]
  - Fatigue [Not Recovered/Not Resolved]
  - Hyperaesthesia [Not Recovered/Not Resolved]
  - Nasal oedema [Not Recovered/Not Resolved]
  - Asthenia [Not Recovered/Not Resolved]

NARRATIVE: CASE EVENT DATE: 20150118
